FAERS Safety Report 9167736 (Version 1)
Quarter: 2013Q1

REPORT INFORMATION
  Report Type: Spontaneous
  Country: CA (occurrence: None)
  Receive Date: 20130304
  Receipt Date: 20130304
  Transmission Date: 20140127
  Serious: Yes (Hospitalization)
  Sender: FDA-Public Use
  Company Number: AG-2013-0574

PATIENT
  Age: 79 Year
  Sex: Male
  Weight: 103.9 kg

DRUGS (26)
  1. CHLORAMBUCIL [Suspect]
     Indication: CHRONIC LYMPHOCYTIC LEUKAEMIA
     Dosage: (52 MILLIGRAM,DAY 1 AND 15),ORAL
     Route: 048
     Dates: start: 20120523
  2. INVESTIGATIONAL [Suspect]
     Indication: CHRONIC LYMPHOCYTIC LEUKAEMIA
     Dosage: (1000 MILLIGRAM,1 CYCLICAL),INTRAVENOUS
     Route: 042
     Dates: start: 20120523
  3. ACETAMINOPHEN [Suspect]
     Route: 048
     Dates: start: 20120523, end: 20120529
  4. PLAVIX(CLOPIDOGREL) (UNKNOWN) [Concomitant]
  5. METFORMIN HYDROCHLORIDE(METFORMIN) (UNKNOWN) [Concomitant]
  6. GLYBURIDE(GLIBENCLAMIDE) (UNKNOWN) [Concomitant]
  7. HUMAN ISOPHANE INSULIN(INSULIN (HUMAN)) [Concomitant]
  8. XALATAN(LATANOPROST) (OPTHALMIC INSERT) [Concomitant]
  9. SYMBICORT(BUDESONIDE, FORMOTEROL) [Concomitant]
  10. BETADERM(BETAMETHASONE) (CONCENTRATE FOR SOLUTION FOR INFUSION) [Concomitant]
  11. PREDNISONE (PREDNISONE) [Concomitant]
  12. FOLIC ACID(FOLIC ACID) [Concomitant]
  13. LOSEC(OMEPRAZOLE) [Concomitant]
  14. GLUCOBAY(ACARBOSE) [Concomitant]
  15. RAMIPRIL(RAMIPRIL) [Concomitant]
  16. LASIX(FUROSEMIDE) [Concomitant]
  17. ACTOS(PIOGLITAZONE) [Concomitant]
  18. AVAPRO(IRBESARTAN) [Concomitant]
  19. LIPITOR(ATORVASTATIN) [Concomitant]
  20. ZOPICLONE(ZOPICLONE) [Concomitant]
  21. ALLOPURINOL(ALLOPURINOL) [Concomitant]
  22. ABREVA(DOCOSANOL) [Concomitant]
  23. COLACE(DOCUSATE SODIUM) [Concomitant]
  24. LAXADIN(BISACODYL) [Concomitant]
  25. SENNA(SENNA GLYCOSIDES) (TABLET) [Concomitant]
  26. SULFATRIM(SULFAMETHOXAZOLE, TRIMETHOPRIM) [Concomitant]

REACTIONS (3)
  - Pneumonia aspiration [None]
  - Neutropenia [None]
  - Influenza [None]
